FAERS Safety Report 4502228-9 (Version None)
Quarter: 2004Q4

REPORT INFORMATION
  Report Type: 
  Country: None (occurrence: None)
  Receive Date: 20041116
  Receipt Date: 20041105
  Transmission Date: 20050328
  Serious: Yes (Other)
  Sender: FDA-Public Use
  Company Number: US-JNJFOC-20041102080

PATIENT
  Age: 21 Year
  Sex: Female
  Weight: 54.43 kg

DRUGS (1)
  1. ORTHO EVRA [Suspect]
     Indication: CONTRACEPTION
     Route: 062
     Dates: start: 20040911, end: 20041105

REACTIONS (6)
  - CORNEAL NEOVASCULARISATION [None]
  - DRY EYE [None]
  - EYE IRRITATION [None]
  - OCULAR DISCOMFORT [None]
  - ROAD TRAFFIC ACCIDENT [None]
  - WRIST FRACTURE [None]
